FAERS Safety Report 5808166-3 (Version None)
Quarter: 2008Q3

REPORT INFORMATION
  Report Type: 
  Country: None (occurrence: None)
  Receive Date: 20080709
  Receipt Date: 20080425
  Transmission Date: 20090109
  Serious: No
  Sender: FDA-Public Use
  Company Number: 2008S1003292

PATIENT
  Age: 20 Year
  Sex: Male
  Weight: 85.2762 kg

DRUGS (4)
  1. ISOTRETINOIN [Suspect]
     Indication: ACNE
     Dosage: 20 MG; DAILY; ORAL
     Route: 048
     Dates: start: 20071031, end: 20071231
  2. ISOTRETINOIN [Suspect]
     Indication: ACNE
     Dosage: 40 MG; DAILY; ORAL, 40 MG; TWICE A DAY; ORAL
     Route: 048
     Dates: start: 20071031, end: 20071231
  3. ISOTRETINOIN [Suspect]
     Indication: ACNE
     Dosage: 40 MG; DAILY; ORAL, 40 MG; TWICE A DAY; ORAL
     Route: 048
     Dates: start: 20071231, end: 20080223
  4. MULTIVITAMIN [Concomitant]

REACTIONS (4)
  - CRYING [None]
  - DEPRESSION [None]
  - DRUG INEFFECTIVE [None]
  - SUICIDAL IDEATION [None]
